FAERS Safety Report 10331261 (Version 2)
Quarter: 2014Q3

REPORT INFORMATION
  Report Type: Spontaneous
  Country: BE (occurrence: BE)
  Receive Date: 20140722
  Receipt Date: 20140722
  Transmission Date: 20150326
  Serious: Yes (Life-Threatening)
  Sender: FDA-Public Use
  Company Number: BE-DSJP-DSE-2014-114382

PATIENT

DRUGS (7)
  1. BELSAR 20 MG [Suspect]
     Active Substance: OLMESARTAN MEDOXOMIL
     Dosage: 20 MG, QD
     Route: 048
     Dates: start: 2014, end: 20140509
  2. EUTHYROX [Concomitant]
     Active Substance: LEVOTHYROXINE SODIUM
     Indication: HYPOTHYROIDISM
  3. CALCIUM + VITAMIN D                /00944201/ [Concomitant]
     Active Substance: CALCIUM\VITAMIN D
     Indication: OSTEOPOROSIS
  4. TENORMIN [Concomitant]
     Active Substance: ATENOLOL
     Indication: HYPERTENSION
  5. ZOCOR [Concomitant]
     Active Substance: SIMVASTATIN
     Indication: HYPERCHOLESTEROLAEMIA
  6. BELSAR 20 MG [Suspect]
     Active Substance: OLMESARTAN MEDOXOMIL
     Indication: HYPERTENSION
     Dosage: 20 MG, QD
     Route: 048
     Dates: start: 20130528, end: 20140425
  7. ASAFLOW [Concomitant]
     Active Substance: ASPIRIN
     Indication: TRANSIENT ISCHAEMIC ATTACK

REACTIONS (11)
  - Oedema peripheral [None]
  - Nausea [None]
  - Diarrhoea [Recovering/Resolving]
  - Weight decreased [None]
  - Faecal calprotectin increased [None]
  - Hypokalaemia [None]
  - Hypercreatinaemia [None]
  - Flatulence [None]
  - Renal disorder [Recovered/Resolved]
  - Diarrhoea haemorrhagic [None]
  - Blood albumin decreased [None]

NARRATIVE: CASE EVENT DATE: 2014
